FAERS Safety Report 11588333 (Version 1)
Quarter: 2015Q4

REPORT INFORMATION
  Report Type: Spontaneous
  Country: US (occurrence: None)
  Receive Date: 20151001
  Receipt Date: 20151001
  Transmission Date: 20160304
  Serious: No
  Sender: FDA-Public Use
  Company Number: None

PATIENT
  Age: 63 Year
  Sex: Male
  Weight: 81.65 kg

DRUGS (13)
  1. SEROQUEL [Suspect]
     Active Substance: QUETIAPINE FUMARATE
     Indication: DEPRESSION
  2. NIACIN. [Concomitant]
     Active Substance: NIACIN
  3. XALATAN [Concomitant]
     Active Substance: LATANOPROST
  4. DEPLIN [Concomitant]
     Active Substance: LEVOMEFOLATE CALCIUM
  5. ASA [Concomitant]
     Active Substance: ASPIRIN
  6. VITAMIN D3 [Concomitant]
     Active Substance: CHOLECALCIFEROL
  7. OMEGA 3 [Concomitant]
     Active Substance: OMEGA-3 FATTY ACIDS
  8. LISINOPRIL. [Concomitant]
     Active Substance: LISINOPRIL
  9. LAMICTAL [Concomitant]
     Active Substance: LAMOTRIGINE
  10. LUVOX [Concomitant]
     Active Substance: FLUVOXAMINE MALEATE
  11. NUVIGIL [Concomitant]
     Active Substance: ARMODAFINIL
  12. CALCIUM [Concomitant]
     Active Substance: CALCIUM
  13. ATORVASTATIN [Concomitant]
     Active Substance: ATORVASTATIN

REACTIONS (4)
  - Fall [None]
  - Blood glucose decreased [None]
  - Aggression [None]
  - Balance disorder [None]
